FAERS Safety Report 8608205-0 (Version None)
Quarter: 2012Q3

REPORT INFORMATION
  Report Type: 
  Country: None (occurrence: None)
  Receive Date: 20120821
  Receipt Date: 20120816
  Transmission Date: 20120928
  Serious: Yes (Death, Other)
  Sender: FDA-Public Use
  Company Number: FR-PFIZER INC-2012200325

PATIENT
  Age: 64 Year
  Sex: Male

DRUGS (4)
  1. LEXOMIL [Concomitant]
     Dosage: UNK
  2. ZOLPIDEM [Concomitant]
     Dosage: UNK
  3. ATORVASTATIN [Suspect]
     Indication: VASOSPASM
     Dosage: UNK
     Route: 048
     Dates: start: 20120619, end: 20120703
  4. ACETAMINOPHEN [Concomitant]
     Dosage: UNK

REACTIONS (5)
  - RESPIRATORY DISORDER [None]
  - RENAL FAILURE [None]
  - RHABDOMYOLYSIS [None]
  - MULTI-ORGAN FAILURE [None]
  - HEPATOCELLULAR INJURY [None]
